FAERS Safety Report 8384637-3 (Version None)
Quarter: 2012Q2

REPORT INFORMATION
  Report Type: 
  Country: None (occurrence: None)
  Receive Date: 20120524
  Receipt Date: 20120515
  Transmission Date: 20120825
  Serious: Yes (Death)
  Sender: FDA-Public Use
  Company Number: CA-JNJFOC-20120412664

PATIENT
  Sex: Male

DRUGS (3)
  1. ACETAMINOPHEN [Suspect]
     Indication: PRODUCT USED FOR UNKNOWN INDICATION
     Route: 065
  2. BENYLIN DM DRY COUGH SYRUP [Suspect]
     Indication: COUGH
     Route: 048
  3. ACETAMINOPHEN [Suspect]
     Route: 065

REACTIONS (2)
  - DRUG LEVEL INCREASED [None]
  - TOXICITY TO VARIOUS AGENTS [None]
